FAERS Safety Report 22397319 (Version 1)
Quarter: 2023Q2

REPORT INFORMATION
  Report Type: Spontaneous
  Country: US (occurrence: US)
  Receive Date: 20230602
  Receipt Date: 20230602
  Transmission Date: 20230721
  Serious: No
  Sender: FDA-Public Use
  Company Number: US-GSK-US2023AMR074949

PATIENT

DRUGS (4)
  1. SUMATRIPTAN SUCCINATE [Suspect]
     Active Substance: SUMATRIPTAN SUCCINATE
     Indication: Headache
     Dosage: UNK
  2. TIVICAY [Concomitant]
     Active Substance: DOLUTEGRAVIR SODIUM
     Indication: HIV infection
     Dosage: UNK
     Dates: start: 19950601, end: 20230510
  3. PIFELTRO [Concomitant]
     Active Substance: DORAVIRINE
     Indication: HIV infection
     Dosage: UNK
     Dates: start: 19950601, end: 20230510
  4. PREZCOBIX [Concomitant]
     Active Substance: COBICISTAT\DARUNAVIR ETHANOLATE
     Indication: HIV infection
     Dosage: UNK
     Dates: start: 19950601, end: 20230510

REACTIONS (2)
  - Chest pain [Unknown]
  - Drug ineffective [Unknown]
